FAERS Safety Report 14775753 (Version 2)
Quarter: 2018Q2

REPORT INFORMATION
  Report Type: Spontaneous
  Country: US (occurrence: US)
  Receive Date: 20180418
  Receipt Date: 20180430
  Transmission Date: 20180711
  Serious: Yes (Hospitalization)
  Sender: FDA-Public Use
  Company Number: US-SA-2018SA107582

PATIENT
  Sex: Female

DRUGS (1)
  1. LEMTRADA [Suspect]
     Active Substance: ALEMTUZUMAB
     Route: 041
     Dates: end: 201711

REACTIONS (3)
  - Chromaturia [Unknown]
  - Autoimmune haemolytic anaemia [Recovering/Resolving]
  - Haemoglobin abnormal [Recovering/Resolving]
